FAERS Safety Report 17611377 (Version 1)
Quarter: 2020Q2

REPORT INFORMATION
  Report Type: Spontaneous
  Country: US (occurrence: US)
  Receive Date: 20200401
  Receipt Date: 20200401
  Transmission Date: 20200713
  Serious: No
  Sender: FDA-Public Use
  Company Number: US-TEVA-2020-US-1213904

PATIENT
  Sex: Female

DRUGS (1)
  1. PROGESTERONE TEVA [Suspect]
     Active Substance: PROGESTERONE
     Route: 065

REACTIONS (2)
  - Urticaria [Unknown]
  - Product dosage form issue [Unknown]
